FAERS Safety Report 10470362 (Version 3)
Quarter: 2015Q2

REPORT INFORMATION
  Report Type: Spontaneous
  Country: US (occurrence: US)
  Receive Date: 20140923
  Receipt Date: 20150612
  Transmission Date: 20150821
  Serious: Yes (Hospitalization)
  Sender: FDA-Public Use
  Company Number: US-BAYER-2014-141652

PATIENT
  Age: 34 Year
  Sex: Female

DRUGS (7)
  1. MIRENA [Suspect]
     Active Substance: LEVONORGESTREL
     Indication: MENORRHAGIA
     Dosage: 20 MCG/24HR, CONT
     Route: 015
     Dates: start: 20110422, end: 20121117
  2. BENTYL [Concomitant]
     Active Substance: DICYCLOMINE HYDROCHLORIDE
  3. LOESTRIN NOS [Concomitant]
     Active Substance: ETHINYL ESTRADIOL\NORETHINDRONE ACETATE
  4. MEDROXYPROGESTERONE [Concomitant]
     Active Substance: MEDROXYPROGESTERONE
  5. MONISTAT [Concomitant]
     Active Substance: MICONAZOLE NITRATE
  6. LO/OVRAL [Concomitant]
     Active Substance: ETHINYL ESTRADIOL\NORGESTREL
  7. OMEPRAZOLE. [Concomitant]
     Active Substance: OMEPRAZOLE

REACTIONS (14)
  - Abdominal pain [None]
  - Injury [None]
  - Genital haemorrhage [None]
  - Anxiety [None]
  - Fear [None]
  - Uterine perforation [None]
  - Depressed mood [None]
  - Medical device discomfort [None]
  - Device issue [None]
  - Emotional distress [None]
  - Internal injury [None]
  - Pelvic pain [None]
  - General physical health deterioration [None]
  - Depression [None]

NARRATIVE: CASE EVENT DATE: 201107
